FAERS Safety Report 25066534 (Version 1)
Quarter: 2025Q1

REPORT INFORMATION
  Report Type: Spontaneous
  Country: US (occurrence: US)
  Receive Date: 20250312
  Receipt Date: 20250312
  Transmission Date: 20250409
  Serious: No
  Sender: CELLTRION
  Company Number: US-CELLTRION INC.-2024US032838

PATIENT

DRUGS (1)
  1. ZYMFENTRA [Suspect]
     Active Substance: INFLIXIMAB-DYYB
     Indication: Colitis ulcerative
     Dosage: 120 MG/ML PEN KIT - INJECT THE CONTENTS OF ONE DEVICE UNDER THE SKIN EVERY TWO WEEKS / 120 MG EVERY
     Route: 058

REACTIONS (1)
  - Sensitive skin [Recovered/Resolved]

NARRATIVE: CASE EVENT DATE: 20241015
